FAERS Safety Report 21800567 (Version 1)
Quarter: 2022Q4

REPORT INFORMATION
  Report Type: Report from Study
  Country: US (occurrence: US)
  Receive Date: 20221230
  Receipt Date: 20221230
  Transmission Date: 20230113
  Serious: No
  Sender: FDA-Public Use
  Company Number: US-ABBVIE-21K-163-4189426-00

PATIENT
  Sex: Male

DRUGS (2)
  1. IMBRUVICA [Suspect]
     Active Substance: IBRUTINIB
     Indication: Chronic lymphocytic leukaemia recurrent
     Dosage: START DATE FOR EVENTS HIGH BLOOD PRESSURE, PLATELETS LOW, SORES ALL OVER, SORES MOUTH, WHITE BLOO...
     Route: 048
     Dates: start: 20210302
  2. IMBRUVICA [Suspect]
     Active Substance: IBRUTINIB
     Indication: Chronic lymphocytic leukaemia recurrent
     Route: 048

REACTIONS (7)
  - White blood cell count increased [Unknown]
  - Blood test abnormal [Unknown]
  - Ulcer [Unknown]
  - Hypertension [Unknown]
  - Platelet count decreased [Unknown]
  - Stomatitis [Unknown]
  - Palpitations [Unknown]
